FAERS Safety Report 11517081 (Version 1)
Quarter: 2015Q3

REPORT INFORMATION
  Report Type: Spontaneous
  Country: JP (occurrence: JP)
  Receive Date: 20150917
  Receipt Date: 20150917
  Transmission Date: 20151125
  Serious: Yes (Other)
  Sender: FDA-Public Use
  Company Number: JP-GLAXOSMITHKLINE-JP2015JPN130266

PATIENT
  Age: 11 Year
  Sex: Female

DRUGS (1)
  1. VOTRIENT [Suspect]
     Active Substance: PAZOPANIB HYDROCHLORIDE
     Indication: SYNOVIAL SARCOMA
     Dosage: 400 MG, 1D
     Route: 048
     Dates: start: 2013, end: 201507

REACTIONS (1)
  - Synovial sarcoma [Not Recovered/Not Resolved]

NARRATIVE: CASE EVENT DATE: 201507
